FAERS Safety Report 15223216 (Version 3)
Quarter: 2018Q4

REPORT INFORMATION
  Report Type: Spontaneous
  Country: US (occurrence: US)
  Receive Date: 20180731
  Receipt Date: 20181129
  Transmission Date: 20190204
  Serious: Yes (Hospitalization, Other)
  Sender: FDA-Public Use
  Company Number: US-PFIZER INC-2018307393

PATIENT
  Age: 58 Year
  Sex: Male

DRUGS (1)
  1. LYRICA [Suspect]
     Active Substance: PREGABALIN
     Dosage: 200 MG, 3X/DAY

REACTIONS (16)
  - Neoplasm [Unknown]
  - Pain in extremity [Unknown]
  - Seizure [Unknown]
  - Depressed level of consciousness [Unknown]
  - Metastases to lung [Unknown]
  - Gait disturbance [Unknown]
  - Abdominal pain upper [Unknown]
  - Mobility decreased [Unknown]
  - Headache [Unknown]
  - Oesophageal neoplasm [Unknown]
  - Hypoaesthesia [Unknown]
  - Blood pressure increased [Unknown]
  - Neoplasm malignant [Unknown]
  - Weight decreased [Unknown]
  - Throat cancer [Unknown]
  - Insomnia [Unknown]
